FAERS Safety Report 9555315 (Version 1)
Quarter: 2013Q3

REPORT INFORMATION
  Report Type: Spontaneous
  Country: US (occurrence: None)
  Receive Date: 20130816
  Receipt Date: 20130816
  Transmission Date: 20140515
  Serious: No
  Sender: FDA-Public Use
  Company Number: US-011711

PATIENT
  Age: 83 Year
  Sex: Female
  Weight: 145 kg

DRUGS (7)
  1. PICO-SALAX (NOT SPECIFIED) [Suspect]
     Indication: BOWEL PREPARATION
     Dosage: 2 PACKET MIXED WITH 5OZ WATER @ 1400 AND ONE PACKET MIXED WITH 5OZ WATER @2000
     Dates: start: 20130506, end: 20130506
  2. NIFEDIPINE [Concomitant]
  3. SIMVASTATIN [Concomitant]
  4. CARBIDOPA [Concomitant]
  5. LEVODOPA [Concomitant]
  6. PAXIL /00500401/ [Concomitant]
  7. ECOTRIN [Concomitant]

REACTIONS (5)
  - Nausea [None]
  - Abdominal pain upper [None]
  - Vomiting [None]
  - Diarrhoea [None]
  - Drug ineffective [None]
